FAERS Safety Report 18401639 (Version 4)
Quarter: 2020Q4

REPORT INFORMATION
  Report Type: Spontaneous
  Country: DE (occurrence: DE)
  Receive Date: 20201019
  Receipt Date: 20201126
  Transmission Date: 20210114
  Serious: Yes (Hospitalization, Other)
  Sender: FDA-Public Use
  Company Number: DE-ABBVIE-20K-062-3607439-00

PATIENT
  Age: 59 Year
  Sex: Female
  Weight: 65 kg

DRUGS (3)
  1. HUMIRA [Suspect]
     Active Substance: ADALIMUMAB
     Indication: CROHN^S DISEASE
     Route: 058
     Dates: start: 20170831
  2. DOMPERIDONE [Concomitant]
     Active Substance: DOMPERIDONE
     Indication: GASTROOESOPHAGEAL REFLUX DISEASE
     Route: 048
     Dates: start: 20170831
  3. PANTOPRAZOLE [Concomitant]
     Active Substance: PANTOPRAZOLE
     Indication: GASTROINTESTINAL DISORDER PROPHYLAXIS
     Route: 048
     Dates: start: 20170831

REACTIONS (16)
  - Non-alcoholic steatohepatitis [Recovered/Resolved]
  - Drug-induced liver injury [Unknown]
  - Histology abnormal [Unknown]
  - Gastrointestinal disorder [Unknown]
  - Unevaluable event [Unknown]
  - Hepatic necrosis [Unknown]
  - Obesity [Unknown]
  - Granuloma [Unknown]
  - Portal fibrosis [Unknown]
  - Autoimmune hepatitis [Unknown]
  - Liver function test increased [Unknown]
  - Antinuclear antibody increased [Unknown]
  - Lymphocytic infiltration [Unknown]
  - Alanine aminotransferase increased [Unknown]
  - Transaminases increased [Unknown]
  - Portal tract inflammation [Unknown]

NARRATIVE: CASE EVENT DATE: 2017
